FAERS Safety Report 5273123-5 (Version None)
Quarter: 2007Q1

REPORT INFORMATION
  Report Type: 
  Country: None (occurrence: None)
  Receive Date: 20070322
  Receipt Date: 20070312
  Transmission Date: 20070707
  Serious: Yes (Other)
  Sender: FDA-Public Use
  Company Number: US-SANOFI-SYNTHELABO-A03200702108

PATIENT
  Sex: Male

DRUGS (4)
  1. INDERAL [Concomitant]
     Dosage: UNK
     Route: 065
  2. SEROQUEL [Concomitant]
     Dosage: UNK
     Route: 065
  3. LUVOX [Concomitant]
     Dosage: UNK
     Route: 065
  4. AMBIEN [Suspect]
     Indication: INSOMNIA
     Route: 048

REACTIONS (2)
  - IMPAIRED DRIVING ABILITY [None]
  - SLEEP WALKING [None]
